FAERS Safety Report 19360832 (Version 1)
Quarter: 2021Q2

REPORT INFORMATION
  Report Type: Spontaneous
  Country: CN (occurrence: CN)
  Receive Date: 20210601
  Receipt Date: 20210601
  Transmission Date: 20210717
  Serious: Yes (Hospitalization, Other)
  Sender: FDA-Public Use
  Company Number: CN-009507513-2105CHN007342

PATIENT
  Age: 53 Year
  Sex: Female

DRUGS (7)
  1. PEMBROLIZUMAB. [Suspect]
     Active Substance: PEMBROLIZUMAB
     Dosage: 100 MG
     Dates: start: 20200930
  2. PACLITAXEL. [Suspect]
     Active Substance: PACLITAXEL
     Dosage: COMBINED WITH PEMBROLIZUMAB
     Dates: start: 20190524
  3. PLATINUM [Suspect]
     Active Substance: PLATINUM
     Indication: THYMOMA
     Dosage: THREE CYCLES
     Dates: start: 201903, end: 2019
  4. PLATINUM [Suspect]
     Active Substance: PLATINUM
     Dosage: COMBINED WITH PEMBROLIZUMAB
     Dates: start: 20190524
  5. PEMBROLIZUMAB. [Suspect]
     Active Substance: PEMBROLIZUMAB
     Indication: THYMOMA
     Dosage: 200 MILLIGRAM
     Dates: start: 20190524
  6. PEMBROLIZUMAB. [Suspect]
     Active Substance: PEMBROLIZUMAB
     Dosage: 100 MG
     Dates: start: 20200316
  7. PACLITAXEL. [Suspect]
     Active Substance: PACLITAXEL
     Indication: THYMOMA
     Dosage: THREE CYCLES
     Dates: start: 201903, end: 2019

REACTIONS (12)
  - Product use in unapproved indication [Unknown]
  - Immune-mediated hepatic disorder [Recovered/Resolved]
  - Immune-mediated myocarditis [Recovered/Resolved]
  - Immune-mediated renal disorder [Recovered/Resolved]
  - Immune-mediated renal disorder [Recovered/Resolved]
  - Off label use [Unknown]
  - Immune-mediated hypothyroidism [Recovered/Resolved]
  - Immune-mediated myocarditis [Recovered/Resolved]
  - Immune-mediated myocarditis [Recovered/Resolved]
  - Immune-mediated hepatic disorder [Recovered/Resolved]
  - Immune-mediated hypothyroidism [Recovered/Resolved]
  - Immune-mediated hepatic disorder [Recovered/Resolved]

NARRATIVE: CASE EVENT DATE: 20190524
